FAERS Safety Report 4769975-5 (Version None)
Quarter: 2005Q3

REPORT INFORMATION
  Report Type: 
  Country: None (occurrence: None)
  Receive Date: 20050913
  Receipt Date: 20050913
  Transmission Date: 20060218
  Serious: Yes (Hospitalization)
  Sender: FDA-Public Use
  Company Number: None

PATIENT
  Age: 42 Year
  Sex: Male
  Weight: 130.6 kg

DRUGS (5)
  1. DAUNORUBICIN HCL [Suspect]
     Indication: ACUTE MYELOID LEUKAEMIA
     Dosage: 230 MG , IV PUSH DAILY FOR 3 DAYS
     Route: 042
     Dates: start: 20050902, end: 20050905
  2. CYTARABINE [Suspect]
     Dosage: 260 MG, IV DAILY 1-2 DAYS
     Route: 042
     Dates: start: 20050902, end: 20050909
  3. NYSTATIN [Concomitant]
  4. HADDADS [Concomitant]
  5. MORPHINE [Concomitant]

REACTIONS (5)
  - DYSPHAGIA [None]
  - MUCOSAL INFLAMMATION [None]
  - ODYNOPHAGIA [None]
  - PAIN [None]
  - SWELLING FACE [None]
